FAERS Safety Report 5619546-3 (Version None)
Quarter: 2008Q1

REPORT INFORMATION
  Report Type: 
  Country: None (occurrence: None)
  Receive Date: 20080114
  Receipt Date: 20061121
  Transmission Date: 20080703
  Serious: Yes (Hospitalization)
  Sender: FDA-Public Use
  Company Number: A03200607012

PATIENT
  Age: 60 Year
  Sex: Male

DRUGS (1)
  1. PLAVIX [Suspect]
     Indication: PERCUTANEOUS CORONARY INTERVENTION
     Dosage: 75 MG QD - ORAL
     Route: 048
     Dates: start: 20061101

REACTIONS (4)
  - DYSSTASIA [None]
  - HEPATIC FAILURE [None]
  - MEMORY IMPAIRMENT [None]
  - PANCREATITIS [None]
